FAERS Safety Report 8119792-3 (Version None)
Quarter: 2012Q1

REPORT INFORMATION
  Report Type: 
  Country: None (occurrence: None)
  Receive Date: 20120203
  Receipt Date: 20120116
  Transmission Date: 20120608
  Serious: Yes (Hospitalization, Other)
  Sender: FDA-Public Use
  Company Number: JPI-P-017063

PATIENT
  Age: 62 Year
  Sex: Male
  Weight: 127.0072 kg

DRUGS (36)
  1. UNSPECIFIED HEART MEDICATIONS (UNKNOWN) [Suspect]
     Indication: CARDIAC DISORDER
     Dosage: (UNKNOWN), ORAL
     Route: 048
  2. POTASSIUM CHLORIDE (CAPSULES) [Concomitant]
  3. STEROIDS [Suspect]
     Indication: STAPHYLOCOCCAL INFECTION
     Dosage: (UNKNOWN)
     Dates: start: 20100429
  4. UNSPECIFIED THYROID MEDICINE [Concomitant]
  5. ALPRAZOLAM [Concomitant]
  6. ROSUVASTATIN (TABLETS) [Concomitant]
  7. FUROSEMIDE [Concomitant]
  8. LISINOPRIL [Concomitant]
  9. MODAFINIL (TABLETS) [Concomitant]
  10. WARFARIN SODIUM [Concomitant]
  11. DIGOXIN [Concomitant]
  12. SPIRONOLACTONE [Concomitant]
  13. CLOPIDOGREL BISULFATE (TABLETS) [Concomitant]
  14. MULTIPLE UNSPECIFIED MEDICATIONS [Concomitant]
  15. ASPIRIN [Concomitant]
  16. LEVOTHYROXINE (TABLETS) [Concomitant]
  17. XYREM [Suspect]
     Indication: FIBROMYALGIA
     Dosage: 5 GM (2.5 GM, 2 IN 1 D), ORAL, 6 GM (3 GM, 2 IN 1 D), ORAL, 12 GM (6 GM, 2 IN 1 D), ORAL, (4.5 GM),
     Route: 048
     Dates: start: 20020923, end: 20080101
  18. XYREM [Suspect]
     Indication: ARTHRITIS
     Dosage: 5 GM (2.5 GM, 2 IN 1 D), ORAL, 6 GM (3 GM, 2 IN 1 D), ORAL, 12 GM (6 GM, 2 IN 1 D), ORAL, (4.5 GM),
     Route: 048
     Dates: start: 20020923, end: 20080101
  19. XYREM [Suspect]
     Indication: SLEEP APNOEA SYNDROME
     Dosage: 5 GM (2.5 GM, 2 IN 1 D), ORAL, 6 GM (3 GM, 2 IN 1 D), ORAL, 12 GM (6 GM, 2 IN 1 D), ORAL, (4.5 GM),
     Route: 048
     Dates: start: 20020923, end: 20080101
  20. XYREM [Suspect]
     Indication: CARDIAC FAILURE CONGESTIVE
     Dosage: 5 GM (2.5 GM, 2 IN 1 D), ORAL, 6 GM (3 GM, 2 IN 1 D), ORAL, 12 GM (6 GM, 2 IN 1 D), ORAL, (4.5 GM),
     Route: 048
     Dates: start: 20020923, end: 20080101
  21. XYREM [Suspect]
     Indication: CATAPLEXY
     Dosage: 5 GM (2.5 GM, 2 IN 1 D), ORAL, 6 GM (3 GM, 2 IN 1 D), ORAL, 12 GM (6 GM, 2 IN 1 D), ORAL, (4.5 GM),
     Route: 048
     Dates: start: 20020923, end: 20080101
  22. XYREM [Suspect]
     Indication: FIBROMYALGIA
     Dosage: 5 GM (2.5 GM, 2 IN 1 D), ORAL, 6 GM (3 GM, 2 IN 1 D), ORAL, 12 GM (6 GM, 2 IN 1 D), ORAL, (4.5 GM),
     Route: 048
     Dates: start: 20090209, end: 20090304
  23. XYREM [Suspect]
     Indication: ARTHRITIS
     Dosage: 5 GM (2.5 GM, 2 IN 1 D), ORAL, 6 GM (3 GM, 2 IN 1 D), ORAL, 12 GM (6 GM, 2 IN 1 D), ORAL, (4.5 GM),
     Route: 048
     Dates: start: 20090209, end: 20090304
  24. XYREM [Suspect]
     Indication: SLEEP APNOEA SYNDROME
     Dosage: 5 GM (2.5 GM, 2 IN 1 D), ORAL, 6 GM (3 GM, 2 IN 1 D), ORAL, 12 GM (6 GM, 2 IN 1 D), ORAL, (4.5 GM),
     Route: 048
     Dates: start: 20090209, end: 20090304
  25. XYREM [Suspect]
     Indication: CARDIAC FAILURE CONGESTIVE
     Dosage: 5 GM (2.5 GM, 2 IN 1 D), ORAL, 6 GM (3 GM, 2 IN 1 D), ORAL, 12 GM (6 GM, 2 IN 1 D), ORAL, (4.5 GM),
     Route: 048
     Dates: start: 20090209, end: 20090304
  26. XYREM [Suspect]
     Indication: CATAPLEXY
     Dosage: 5 GM (2.5 GM, 2 IN 1 D), ORAL, 6 GM (3 GM, 2 IN 1 D), ORAL, 12 GM (6 GM, 2 IN 1 D), ORAL, (4.5 GM),
     Route: 048
     Dates: start: 20090209, end: 20090304
  27. XYREM [Suspect]
     Indication: FIBROMYALGIA
     Dosage: 5 GM (2.5 GM, 2 IN 1 D), ORAL, 6 GM (3 GM, 2 IN 1 D), ORAL, 12 GM (6 GM, 2 IN 1 D), ORAL, (4.5 GM),
     Route: 048
     Dates: start: 20090305, end: 20100101
  28. XYREM [Suspect]
     Indication: ARTHRITIS
     Dosage: 5 GM (2.5 GM, 2 IN 1 D), ORAL, 6 GM (3 GM, 2 IN 1 D), ORAL, 12 GM (6 GM, 2 IN 1 D), ORAL, (4.5 GM),
     Route: 048
     Dates: start: 20090305, end: 20100101
  29. XYREM [Suspect]
     Indication: SLEEP APNOEA SYNDROME
     Dosage: 5 GM (2.5 GM, 2 IN 1 D), ORAL, 6 GM (3 GM, 2 IN 1 D), ORAL, 12 GM (6 GM, 2 IN 1 D), ORAL, (4.5 GM),
     Route: 048
     Dates: start: 20090305, end: 20100101
  30. XYREM [Suspect]
     Indication: CARDIAC FAILURE CONGESTIVE
     Dosage: 5 GM (2.5 GM, 2 IN 1 D), ORAL, 6 GM (3 GM, 2 IN 1 D), ORAL, 12 GM (6 GM, 2 IN 1 D), ORAL, (4.5 GM),
     Route: 048
     Dates: start: 20090305, end: 20100101
  31. XYREM [Suspect]
     Indication: CATAPLEXY
     Dosage: 5 GM (2.5 GM, 2 IN 1 D), ORAL, 6 GM (3 GM, 2 IN 1 D), ORAL, 12 GM (6 GM, 2 IN 1 D), ORAL, (4.5 GM),
     Route: 048
     Dates: start: 20090305, end: 20100101
  32. XYREM [Suspect]
     Indication: FIBROMYALGIA
     Dosage: 5 GM (2.5 GM, 2 IN 1 D), ORAL, 6 GM (3 GM, 2 IN 1 D), ORAL, 12 GM (6 GM, 2 IN 1 D), ORAL, (4.5 GM),
     Route: 048
     Dates: start: 20080101, end: 20090208
  33. XYREM [Suspect]
     Indication: ARTHRITIS
     Dosage: 5 GM (2.5 GM, 2 IN 1 D), ORAL, 6 GM (3 GM, 2 IN 1 D), ORAL, 12 GM (6 GM, 2 IN 1 D), ORAL, (4.5 GM),
     Route: 048
     Dates: start: 20080101, end: 20090208
  34. XYREM [Suspect]
     Indication: SLEEP APNOEA SYNDROME
     Dosage: 5 GM (2.5 GM, 2 IN 1 D), ORAL, 6 GM (3 GM, 2 IN 1 D), ORAL, 12 GM (6 GM, 2 IN 1 D), ORAL, (4.5 GM),
     Route: 048
     Dates: start: 20080101, end: 20090208
  35. XYREM [Suspect]
     Indication: CARDIAC FAILURE CONGESTIVE
     Dosage: 5 GM (2.5 GM, 2 IN 1 D), ORAL, 6 GM (3 GM, 2 IN 1 D), ORAL, 12 GM (6 GM, 2 IN 1 D), ORAL, (4.5 GM),
     Route: 048
     Dates: start: 20080101, end: 20090208
  36. XYREM [Suspect]
     Indication: CATAPLEXY
     Dosage: 5 GM (2.5 GM, 2 IN 1 D), ORAL, 6 GM (3 GM, 2 IN 1 D), ORAL, 12 GM (6 GM, 2 IN 1 D), ORAL, (4.5 GM),
     Route: 048
     Dates: start: 20080101, end: 20090208

REACTIONS (21)
  - LOSS OF CONSCIOUSNESS [None]
  - MYOCARDIAL INFARCTION [None]
  - HYPOTHYROIDISM [None]
  - HYPERLIPIDAEMIA [None]
  - CHILLS [None]
  - WEIGHT DECREASED [None]
  - PYREXIA [None]
  - FATIGUE [None]
  - MENTAL STATUS CHANGES [None]
  - GASTROOESOPHAGEAL REFLUX DISEASE [None]
  - CATAPLEXY [None]
  - CARDIAC FAILURE CONGESTIVE [None]
  - ANXIETY [None]
  - DEHYDRATION [None]
  - HEART RATE INCREASED [None]
  - WEIGHT INCREASED [None]
  - APPETITE DISORDER [None]
  - CONVULSION [None]
  - STAPHYLOCOCCAL INFECTION [None]
  - ASTHENIA [None]
  - DYSPNOEA [None]
